FAERS Safety Report 23034793 (Version 1)
Quarter: 2023Q4

REPORT INFORMATION
  Report Type: Spontaneous
  Country: US (occurrence: US)
  Receive Date: 20231005
  Receipt Date: 20231005
  Transmission Date: 20240110
  Serious: No
  Sender: FDA-Public Use
  Company Number: US-BAYER-2023A134492

PATIENT
  Age: 75 Year
  Sex: Female

DRUGS (1)
  1. STIVARGA [Suspect]
     Active Substance: REGORAFENIB
     Indication: Hepatocellular carcinoma
     Dosage: 80 MG
     Route: 048
     Dates: start: 20230817

REACTIONS (3)
  - Erythema [Recovered/Resolved]
  - Tremor [Recovered/Resolved]
  - Off label use [None]

NARRATIVE: CASE EVENT DATE: 20230911
